FAERS Safety Report 9349709 (Version 1)
Quarter: 2013Q2

REPORT INFORMATION
  Report Type: Spontaneous
  Country: GB (occurrence: None)
  Receive Date: 20130611
  Receipt Date: 20130611
  Transmission Date: 20140414
  Serious: Yes (Other)
  Sender: FDA-Public Use
  Company Number: GB-DEXPHARM-20130304

PATIENT
  Age: 72 Year
  Sex: Male

DRUGS (5)
  1. OMEPRAZOLE [Suspect]
     Route: 048
     Dates: start: 20130502, end: 20130509
  2. CANDESARTAN [Concomitant]
  3. DOXAZOSIN [Concomitant]
  4. EMULSIFYING OINTMENT [Concomitant]
  5. TAMSULOSIN HCL [Concomitant]

REACTIONS (1)
  - Jaundice [None]
